FAERS Safety Report 14422293 (Version 1)
Quarter: 2018Q1

REPORT INFORMATION
  Report Type: Spontaneous
  Country: US (occurrence: US)
  Receive Date: 20180123
  Receipt Date: 20180123
  Transmission Date: 20180509
  Serious: No
  Sender: FDA-Public Use
  Company Number: US-ENDO PHARMACEUTICALS INC-2017-002920

PATIENT
  Age: 74 Year

DRUGS (1)
  1. OPANA ER [Suspect]
     Active Substance: OXYMORPHONE HYDROCHLORIDE
     Indication: BACK PAIN
     Dosage: 20 MG, BID
     Route: 065
     Dates: start: 201702

REACTIONS (2)
  - Drug ineffective [Unknown]
  - Fluid retention [Unknown]

NARRATIVE: CASE EVENT DATE: 201702
